FAERS Safety Report 24780124 (Version 1)
Quarter: 2024Q4

REPORT INFORMATION
  Report Type: Spontaneous
  Country: BE (occurrence: BE)
  Receive Date: 20241227
  Receipt Date: 20241227
  Transmission Date: 20250115
  Serious: Yes (Death, Hospitalization)
  Sender: PFIZER
  Company Number: BE-PFIZER INC-PV202400165727

PATIENT
  Age: 65 Year
  Sex: Male

DRUGS (2)
  1. TAFAMIDIS [Suspect]
     Active Substance: TAFAMIDIS
     Indication: Cardiac amyloidosis
  2. AMIODARONE [Suspect]
     Active Substance: AMIODARONE

REACTIONS (3)
  - Sinus arrest [Fatal]
  - Cardiac failure [Unknown]
  - Atrial fibrillation [Unknown]
